FAERS Safety Report 20716343 (Version 2)
Quarter: 2022Q2

REPORT INFORMATION
  Report Type: Report from Study
  Country: AU (occurrence: AU)
  Receive Date: 20220416
  Receipt Date: 20220516
  Transmission Date: 20220721
  Serious: Yes (Hospitalization, Other)
  Sender: FDA-Public Use
  Company Number: AU-BRISTOL-MYERS SQUIBB COMPANY-2022-020711

PATIENT
  Age: 84 Year
  Sex: Male
  Weight: 98 kg

DRUGS (18)
  1. AZACITIDINE [Suspect]
     Active Substance: AZACITIDINE
     Indication: Myelodysplastic syndrome
     Dosage: 7 DAYS WITHIN THE FIRST 9 CALENDAR DAYS OF EACH 28 DAY CYCLE
     Route: 058
     Dates: start: 20211115, end: 20220328
  2. VENETOCLAX [Suspect]
     Active Substance: VENETOCLAX
     Indication: Myelodysplastic syndrome
     Dosage: 14 DAYS ON, 14 DAYS OFF (1 IN 1 D)
     Route: 048
     Dates: start: 20211115, end: 20220330
  3. ALLOPURINOL [Concomitant]
     Active Substance: ALLOPURINOL
     Indication: Gout
     Route: 048
     Dates: start: 20211104, end: 20220330
  4. ASPIRIN [Concomitant]
     Active Substance: ASPIRIN
     Indication: Prophylaxis
     Route: 048
     Dates: start: 20211123
  5. MOVICOL [Concomitant]
     Active Substance: POLYETHYLENE GLYCOL 3350\POTASSIUM CHLORIDE\SODIUM BICARBONATE\SODIUM CHLORIDE
     Indication: Constipation
     Dosage: 1 SACHET,2 IN D
     Route: 048
     Dates: start: 20211122
  6. PANTOPRAZOLE [Concomitant]
     Active Substance: PANTOPRAZOLE
     Indication: Gastrooesophageal reflux disease
     Dosage: 1 IN 1 D
     Route: 048
     Dates: start: 20211119
  7. EZETIMIBE\ROSUVASTATIN [Concomitant]
     Active Substance: EZETIMIBE\ROSUVASTATIN
     Indication: Blood cholesterol increased
     Dosage: 1 IN 1 D
     Route: 048
     Dates: start: 20211126
  8. EZETIMIBE\ROSUVASTATIN [Concomitant]
     Active Substance: EZETIMIBE\ROSUVASTATIN
     Route: 048
     Dates: start: 20220413
  9. ASCORBIC ACID;CUPRIC OXIDE;TOCOPHERYL ACID SUCCINATE;ZINC OXIDE [Concomitant]
     Indication: Eye disorder
     Dosage: 2 IN 1 D
     Route: 048
     Dates: start: 20211126
  10. ASCORBIC ACID;CUPRIC OXIDE;TOCOPHERYL ACID SUCCINATE;ZINC OXIDE [Concomitant]
     Route: 048
     Dates: start: 20220414
  11. POSACONAZOLE [Concomitant]
     Active Substance: POSACONAZOLE
     Indication: Prophylaxis
     Dosage: 1 IN 1 D
     Route: 048
     Dates: start: 20211123
  12. POSACONAZOLE [Concomitant]
     Active Substance: POSACONAZOLE
     Dosage: 1 IN 1 DAY
     Route: 048
     Dates: start: 20220413
  13. LATANOPROST [Concomitant]
     Active Substance: LATANOPROST
     Indication: Glaucoma
     Dosage: 1 IN 1 D
     Route: 031
     Dates: start: 20211126
  14. LATANOPROST [Concomitant]
     Active Substance: LATANOPROST
     Route: 031
     Dates: start: 20220330, end: 20220330
  15. LATANOPROST [Concomitant]
     Active Substance: LATANOPROST
     Route: 031
     Dates: start: 20220414
  16. POTASSIUM CHLORIDE [Concomitant]
     Active Substance: POTASSIUM CHLORIDE
     Indication: Hypokalaemia
     Dosage: 1 IN 1 D
     Dates: start: 20220129
  17. ROSUVASTATIN [Concomitant]
     Active Substance: ROSUVASTATIN
     Indication: Blood cholesterol increased
     Route: 048
     Dates: start: 20220331, end: 20220405
  18. ROSUVASTATIN [Concomitant]
     Active Substance: ROSUVASTATIN
     Dates: start: 20220412, end: 20220412

REACTIONS (2)
  - Febrile neutropenia [Recovered/Resolved]
  - COVID-19 [Not Recovered/Not Resolved]

NARRATIVE: CASE EVENT DATE: 20220330
